FAERS Safety Report 4538146-X (Version None)
Quarter: 2004Q4

REPORT INFORMATION
  Report Type: 
  Country: None (occurrence: None)
  Receive Date: 20041221
  Receipt Date: 20041208
  Transmission Date: 20050328
  Serious: Yes (Hospitalization, Other)
  Sender: FDA-Public Use
  Company Number: 2004107057

PATIENT
  Age: 27 Month
  Sex: Female
  Weight: 11.3399 kg

DRUGS (2)
  1. ZYRTEC [Suspect]
     Indication: HYPERSENSITIVITY
     Dosage: 3.75 MG (3.75 MG, 1 IN 1 D), ORAL
     Route: 048
  2. MONTELUKAST SODIUM (MONTELUKAST SODIUM) [Concomitant]

REACTIONS (6)
  - EYE ROLLING [None]
  - FALL [None]
  - HYPERSOMNIA [None]
  - LETHARGY [None]
  - PHARMACEUTICAL PRODUCT COMPLAINT [None]
  - SOMNOLENCE [None]
